FAERS Safety Report 11016595 (Version 2)
Quarter: 2015Q2

REPORT INFORMATION
  Report Type: Spontaneous
  Country: US (occurrence: US)
  Receive Date: 20150412
  Receipt Date: 20150525
  Transmission Date: 20150821
  Serious: No
  Sender: FDA-Public Use
  Company Number: US-JNJFOC-20130619405

PATIENT
  Age: 50 Year
  Sex: Female

DRUGS (1)
  1. ORTHO-CEPT [Suspect]
     Active Substance: DESOGESTREL\ETHINYL ESTRADIOL
     Indication: OVARIAN CYST
     Route: 048

REACTIONS (4)
  - Menopause [Unknown]
  - Product use issue [Not Recovered/Not Resolved]
  - Blood luteinising hormone decreased [Not Recovered/Not Resolved]
  - Blood follicle stimulating hormone decreased [Not Recovered/Not Resolved]

NARRATIVE: CASE EVENT DATE: 20130501
